FAERS Safety Report 19042499 (Version 2)
Quarter: 2021Q2

REPORT INFORMATION
  Report Type: Spontaneous
  Country: US (occurrence: US)
  Receive Date: 20210323
  Receipt Date: 20210406
  Transmission Date: 20210717
  Serious: Yes (Other)
  Sender: FDA-Public Use
  Company Number: US-ASTRAZENECA-2021A164018

PATIENT
  Age: 72 Year
  Sex: Female
  Weight: 93 kg

DRUGS (2)
  1. BYDUREON BCISE [Suspect]
     Active Substance: EXENATIDE
     Indication: TYPE 2 DIABETES MELLITUS
     Route: 058
  2. WARFARIN [Concomitant]
     Active Substance: WARFARIN

REACTIONS (6)
  - Eye disorder [Unknown]
  - Osteoarthritis [Unknown]
  - Device leakage [Unknown]
  - Needle issue [Unknown]
  - Memory impairment [Unknown]
  - Wrong technique in device usage process [Unknown]

NARRATIVE: CASE EVENT DATE: 2020
